FAERS Safety Report 6892766-6 (Version None)
Quarter: 2010Q3

REPORT INFORMATION
  Report Type: 
  Country: None (occurrence: None)
  Receive Date: 20100731
  Receipt Date: 20080905
  Transmission Date: 20110219
  Serious: No
  Sender: FDA-Public Use
  Company Number: US-PFIZER INC-2008002551

PATIENT
  Sex: Male

DRUGS (1)
  1. CAVERJECT [Suspect]
     Indication: ORGANIC ERECTILE DYSFUNCTION

REACTIONS (2)
  - DEVICE MALFUNCTION [None]
  - INCORRECT DOSE ADMINISTERED [None]
